FAERS Safety Report 7399518-1 (Version None)
Quarter: 2011Q2

REPORT INFORMATION
  Report Type: 
  Country: None (occurrence: None)
  Receive Date: 20110407
  Receipt Date: 20110328
  Transmission Date: 20111010
  Serious: Yes (Other)
  Sender: FDA-Public Use
  Company Number: US-ELI_LILLY_AND_COMPANY-US201102003727

PATIENT
  Sex: Female
  Weight: 67.574 kg

DRUGS (6)
  1. CELEBREX [Concomitant]
  2. COUMADIN [Concomitant]
  3. FORTEO [Suspect]
     Indication: OSTEOPOROSIS
     Dosage: 20 UG, QD
     Route: 058
     Dates: start: 20110201
  4. ATENOLOL [Concomitant]
  5. LYRICA [Concomitant]
  6. PRILOSEC [Concomitant]

REACTIONS (4)
  - PAIN IN EXTREMITY [None]
  - OSTEOARTHRITIS [None]
  - THROMBOSIS [None]
  - CONTUSION [None]
